FAERS Safety Report 6097903-1 (Version None)
Quarter: 2009Q1

REPORT INFORMATION
  Report Type: 
  Country: None (occurrence: None)
  Receive Date: 20090227
  Receipt Date: 20090225
  Transmission Date: 20090719
  Serious: Yes (Death, Hospitalization)
  Sender: FDA-Public Use
  Company Number: PHHY2008MX11168

PATIENT
  Sex: Female

DRUGS (1)
  1. DIOVAN HCT [Suspect]
     Indication: HYPERTENSION
     Dosage: TABLETS OF 160/25 MG PER DAY
     Route: 048
     Dates: end: 20080501

REACTIONS (2)
  - DEATH [None]
  - MYOCARDIAL INFARCTION [None]
